FAERS Safety Report 14962975 (Version 1)
Quarter: 2018Q2

REPORT INFORMATION
  Report Type: Report from Study
  Country: GB (occurrence: GB)
  Receive Date: 20180601
  Receipt Date: 20180601
  Transmission Date: 20180711
  Serious: Yes (Hospitalization)
  Sender: FDA-Public Use
  Company Number: GB-ASPEN-GLO2018GB005273

PATIENT
  Age: 62 Year
  Sex: Male
  Weight: 85.2 kg

DRUGS (28)
  1. ALLOPURINOL. [Concomitant]
     Active Substance: ALLOPURINOL
     Indication: PALLIATIVE CARE
     Dosage: 300 MG, QD
     Route: 048
     Dates: start: 20170403
  2. PARACETAMOL [Concomitant]
     Active Substance: ACETAMINOPHEN
     Indication: BACK PAIN
     Dosage: 1 G
     Route: 048
     Dates: start: 2014
  3. FUROSEMIDE SODIUM [Concomitant]
     Active Substance: FUROSEMIDE SODIUM
     Indication: OLIGURIA
     Dosage: DOSAGE FORM: UNSPECIFIED
     Route: 042
     Dates: start: 20170516, end: 20170517
  4. VENETOCLAX. [Suspect]
     Active Substance: VENETOCLAX
     Dosage: 800 MG, QD
     Route: 048
     Dates: start: 20170807
  5. SALBUTAMOL [Concomitant]
     Active Substance: ALBUTEROL
     Indication: CHRONIC OBSTRUCTIVE PULMONARY DISEASE
     Dosage: 2.5 MG, QD
     Route: 048
     Dates: start: 20170516
  6. COTRIMOXAZOLE [Concomitant]
     Active Substance: SULFAMETHOXAZOLE\TRIMETHOPRIM
     Indication: PALLIATIVE CARE
     Dosage: 480 MG, QD
     Route: 048
     Dates: start: 20170403
  7. CARBOCISTEINE [Concomitant]
     Active Substance: CARBOCYSTEINE
     Indication: CHRONIC OBSTRUCTIVE PULMONARY DISEASE
     Dosage: 375 MG, QD
     Route: 048
     Dates: start: 2014
  8. DUAKLIR [Concomitant]
     Active Substance: ACLIDINIUM BROMIDE\FORMOTEROL FUMARATE
     Indication: CHRONIC OBSTRUCTIVE PULMONARY DISEASE
     Dosage: DOSAGE FORM: INHALATION
     Route: 055
     Dates: start: 20170517
  9. OMEPRAZOLE. [Concomitant]
     Active Substance: OMEPRAZOLE
     Indication: PROPHYLAXIS AGAINST GASTROINTESTINAL ULCER
     Dosage: 20 MG, QD
     Route: 048
     Dates: start: 20170517
  10. DEXAMETHASONE. [Suspect]
     Active Substance: DEXAMETHASONE
     Dosage: 8 MG
     Route: 048
  11. VENETOCLAX. [Suspect]
     Active Substance: VENETOCLAX
     Dosage: 200 MG, QD
     Route: 048
     Dates: start: 20170803, end: 20170806
  12. PREGABALIN. [Concomitant]
     Active Substance: PREGABALIN
     Indication: BACK PAIN
     Dosage: 300 MG, QD
     Route: 048
     Dates: start: 2014
  13. FRAGMIN [Concomitant]
     Active Substance: DALTEPARIN SODIUM
     Indication: THROMBOSIS PROPHYLAXIS
     Dosage: 5000 IU, QD
     Route: 058
     Dates: start: 20170517
  14. FUROSEMIDE SODIUM [Concomitant]
     Active Substance: FUROSEMIDE SODIUM
     Indication: FLUID RETENTION
     Dosage: DOSAGE FORM: UNSPECIFIED
     Route: 042
     Dates: start: 20170517
  15. FUROSEMIDE SODIUM [Concomitant]
     Active Substance: FUROSEMIDE SODIUM
     Dosage: 40 MG, QD
     Route: 042
     Dates: start: 20170606
  16. IPRATROPIUM [Concomitant]
     Active Substance: IPRATROPIUM
     Indication: CHRONIC OBSTRUCTIVE PULMONARY DISEASE
     Dosage: DOSAGE FORM: UNSPECIFIED
     Route: 048
     Dates: start: 20170516
  17. VENETOCLAX. [Suspect]
     Active Substance: VENETOCLAX
     Indication: PLASMA CELL MYELOMA
     Dosage: UNK
     Route: 048
     Dates: start: 20170403, end: 20170730
  18. VELCADE [Suspect]
     Active Substance: BORTEZOMIB
     Indication: PLASMA CELL MYELOMA
     Dosage: 1.3 MG/M2
     Route: 058
     Dates: start: 20170403, end: 20170720
  19. AMITRIPTYLINE PAMOATE [Concomitant]
     Active Substance: AMITRIPTYLINE PAMOATE
     Indication: BACK PAIN
     Dosage: 75 MG, QD
     Route: 048
     Dates: start: 2014
  20. DEXAMETHASONE. [Suspect]
     Active Substance: DEXAMETHASONE
     Dosage: 20 MG
     Route: 048
     Dates: start: 20170403, end: 20170506
  21. METOCLOPRAMIDE. [Concomitant]
     Active Substance: METOCLOPRAMIDE
     Indication: PALLIATIVE CARE
     Dosage: 10 MG
     Route: 048
     Dates: start: 20170403
  22. DEXAMETHASONE. [Suspect]
     Active Substance: DEXAMETHASONE
     Dosage: 12 MG
     Route: 048
     Dates: start: 20170530, end: 20170721
  23. AMITRIPTYLINE PAMOATE [Concomitant]
     Active Substance: AMITRIPTYLINE PAMOATE
     Indication: SEDATIVE THERAPY
     Dosage: 75 MG, QD
     Route: 048
     Dates: start: 2014
  24. PREDNISOLONE. [Concomitant]
     Active Substance: PREDNISOLONE
     Indication: CHRONIC OBSTRUCTIVE PULMONARY DISEASE
     Dosage: 30 MG, QD
     Route: 048
     Dates: start: 20170517
  25. FENTANYL CITRATE. [Concomitant]
     Active Substance: FENTANYL CITRATE
     Indication: BACK PAIN
     Dosage: 125 ?G EVERY 72 HOURS
     Route: 061
     Dates: start: 2014
  26. AZITHROMYCIN ANHYDROUS. [Concomitant]
     Active Substance: AZITHROMYCIN ANHYDROUS
     Indication: CHRONIC OBSTRUCTIVE PULMONARY DISEASE
     Dosage: 500 MG, QD
     Route: 048
     Dates: start: 20170516
  27. ORAMORPH [Concomitant]
     Active Substance: MORPHINE SULFATE
     Indication: ANALGESIC THERAPY
     Dosage: 20 MG
     Route: 048
     Dates: start: 2014
  28. ACICLOVIR [Concomitant]
     Active Substance: ACYCLOVIR
     Indication: PALLIATIVE CARE
     Dosage: 400 MG, QD
     Route: 048
     Dates: start: 20170403

REACTIONS (2)
  - Chronic obstructive pulmonary disease [Recovered/Resolved]
  - Pyrexia [Not Recovered/Not Resolved]

NARRATIVE: CASE EVENT DATE: 20170731
